FAERS Safety Report 13673528 (Version 2)
Quarter: 2017Q2

REPORT INFORMATION
  Report Type: Report from Study
  Country: None (occurrence: US)
  Receive Date: 20170621
  Receipt Date: 20170626
  Transmission Date: 20170830
  Serious: Yes (Death, Hospitalization)
  Sender: FDA-Public Use
  Company Number: US-ABBVIE-17K-163-2013371-00

PATIENT
  Age: 75 Year
  Sex: Female

DRUGS (2)
  1. HUMIRA [Suspect]
     Active Substance: ADALIMUMAB
     Indication: RHEUMATOID ARTHRITIS
     Route: 058
     Dates: start: 2014, end: 201705
  2. ATROPINE. [Concomitant]
     Active Substance: ATROPINE
     Indication: PRODUCT USED FOR UNKNOWN INDICATION

REACTIONS (13)
  - Cardiomyopathy [Fatal]
  - Respiratory failure [Fatal]
  - Pneumonia [Fatal]
  - Bundle branch block left [Fatal]
  - Hypocalcaemia [Fatal]
  - Hypokalaemia [Fatal]
  - Tachycardia [Fatal]
  - Cardiac failure congestive [Fatal]
  - Cardiac arrest [Fatal]
  - Sepsis [Fatal]
  - Encephalopathy [Fatal]
  - Pulmonary embolism [Fatal]
  - Urinary tract infection [Fatal]

NARRATIVE: CASE EVENT DATE: 2017
